FAERS Safety Report 4811394-7 (Version None)
Quarter: 2005Q4

REPORT INFORMATION
  Report Type: 
  Country: None (occurrence: None)
  Receive Date: 20051027
  Receipt Date: 20050921
  Transmission Date: 20060501
  Serious: Yes (Hospitalization)
  Sender: FDA-Public Use
  Company Number: PHBS2005JP14037

PATIENT
  Age: 64 Year
  Sex: Male

DRUGS (5)
  1. TEGRETOL [Suspect]
     Indication: TRIGEMINAL NEURALGIA
     Dosage: UNK, UNK
     Route: 048
     Dates: start: 20050826, end: 20050905
  2. TEGRETOL [Suspect]
     Route: 065
     Dates: start: 20020101
  3. CONIEL [Concomitant]
     Indication: HYPERTENSION
     Dosage: 1 DF/DAY
     Route: 048
     Dates: start: 20030815
  4. LOXONIN [Concomitant]
     Indication: INTERCOSTAL NEURALGIA
     Dosage: 3 DF/DAY
     Route: 048
     Dates: start: 20040426
  5. CYANOCOBALAMIN [Concomitant]
     Indication: INTERCOSTAL NEURALGIA
     Dosage: 3 DF/DAY
     Route: 048
     Dates: start: 20040426

REACTIONS (26)
  - ALANINE AMINOTRANSFERASE INCREASED [None]
  - ANTITHROMBIN III INCREASED [None]
  - ASPARTATE AMINOTRANSFERASE INCREASED [None]
  - BLOOD CREATINE PHOSPHOKINASE INCREASED [None]
  - BLOOD LACTATE DEHYDROGENASE INCREASED [None]
  - BLOOD POTASSIUM DECREASED [None]
  - BLOOD SODIUM DECREASED [None]
  - C-REACTIVE PROTEIN INCREASED [None]
  - DISSEMINATED INTRAVASCULAR COAGULATION [None]
  - DRUG ERUPTION [None]
  - FIBRIN D DIMER INCREASED [None]
  - FIBRIN DEGRADATION PRODUCTS INCREASED [None]
  - GAMMA-GLUTAMYLTRANSFERASE INCREASED [None]
  - GENERALISED ERYTHEMA [None]
  - HAEMOGLOBIN DECREASED [None]
  - HEPATIC FUNCTION ABNORMAL [None]
  - LYMPHOCYTE COUNT INCREASED [None]
  - NAUSEA [None]
  - NEUTROPHIL COUNT DECREASED [None]
  - PANCYTOPENIA [None]
  - PLATELET COUNT DECREASED [None]
  - PROTHROMBIN TIME PROLONGED [None]
  - PYREXIA [None]
  - RASH GENERALISED [None]
  - VOMITING [None]
  - WHITE BLOOD CELL COUNT DECREASED [None]
